FAERS Safety Report 7062959-6 (Version None)
Quarter: 2010Q4

REPORT INFORMATION
  Report Type: 
  Country: None (occurrence: None)
  Receive Date: 20101026
  Receipt Date: 20100302
  Transmission Date: 20110411
  Serious: Yes (Other)
  Sender: FDA-Public Use
  Company Number: US-PFIZER INC-2010028923

PATIENT
  Sex: Female
  Weight: 77 kg

DRUGS (3)
  1. LIPITOR [Suspect]
     Indication: BLOOD CHOLESTEROL INCREASED
     Dosage: 40 MG, 1X/DAY
  2. LIPITOR [Suspect]
     Dosage: 10 MG, 1X/DAY
  3. POTASSIUM [Concomitant]
     Dosage: UNK

REACTIONS (2)
  - MUSCULAR WEAKNESS [None]
  - MYALGIA [None]
